FAERS Safety Report 5156766-9 (Version None)
Quarter: 2006Q4

REPORT INFORMATION
  Report Type: 
  Country: None (occurrence: None)
  Receive Date: 20061115
  Receipt Date: 20061031
  Transmission Date: 20070319
  Serious: Yes (Hospitalization)
  Sender: FDA-Public Use
  Company Number: T06-CHN-04733-01

PATIENT
  Age: 43 Year
  Sex: Female

DRUGS (4)
  1. CITALOPRAM HYDROBROMIDE [Suspect]
     Indication: DEPRESSION
     Dosage: 20 MG QD PO
     Route: 048
     Dates: start: 20060905, end: 20061017
  2. BUSPIRONE HCL [Concomitant]
  3. ALPRAZOLAM [Concomitant]
  4. CLONAZEPAM [Concomitant]

REACTIONS (4)
  - FOAMING AT MOUTH [None]
  - LOSS OF CONSCIOUSNESS [None]
  - MUSCULOSKELETAL STIFFNESS [None]
  - URINARY INCONTINENCE [None]
